FAERS Safety Report 23858034 (Version 1)
Quarter: 2024Q2

REPORT INFORMATION
  Report Type: Spontaneous
  Country: FR (occurrence: FR)
  Receive Date: 20240515
  Receipt Date: 20240515
  Transmission Date: 20240715
  Serious: Yes (Hospitalization, Other)
  Sender: FDA-Public Use
  Company Number: None

PATIENT

DRUGS (4)
  1. CEFAZOLIN SODIUM [Suspect]
     Active Substance: CEFAZOLIN SODIUM
     Indication: Clostridial infection
     Dosage: 5 GRAM, QD
     Route: 042
     Dates: start: 20240116, end: 20240202
  2. LINEZOLID [Suspect]
     Active Substance: LINEZOLID
     Indication: Clostridial infection
     Dosage: 1200 MILLIGRAM, QD
     Route: 042
     Dates: start: 20240108, end: 20240116
  3. PIPERACILLIN AND TAZOBACTAM [Suspect]
     Active Substance: PIPERACILLIN SODIUM\TAZOBACTAM SODIUM
     Indication: Clostridial infection
     Dosage: 16 GRAM, QD
     Route: 042
     Dates: start: 20240108, end: 20240116
  4. VANCOMYCIN [Suspect]
     Active Substance: VANCOMYCIN
     Indication: Clostridial infection
     Dosage: 2 GRAM, QD
     Route: 042
     Dates: start: 20240116, end: 20240119

REACTIONS (1)
  - Symmetrical drug-related intertriginous and flexural exanthema [Recovering/Resolving]

NARRATIVE: CASE EVENT DATE: 20240119
